FAERS Safety Report 8330500 (Version 5)
Quarter: 2013Q3

REPORT INFORMATION
  Report Type: Spontaneous
  Country: GB (occurrence: GB)
  Receive Date: 20120111
  Receipt Date: 20130912
  Transmission Date: 20140515
  Serious: Yes (Death, Hospitalization)
  Sender: FDA-Public Use
  Company Number: PHFR2011GB007185

PATIENT
  Age: 49 Year
  Sex: Female

DRUGS (17)
  1. CLOZARIL [Suspect]
     Indication: SCHIZOPHRENIA
     Dosage: 600 MG
     Route: 048
     Dates: start: 20010701
  2. AMISULPRIDE [Concomitant]
     Dosage: 400 MG
     Route: 048
  3. AMISULPRIDE [Concomitant]
     Dosage: 100 MG, QDS
  4. FLUOXETINE [Concomitant]
     Dosage: 20 MG, DAILY
     Route: 048
  5. METFORMIN [Concomitant]
     Dosage: 500 MG, TID
     Route: 048
  6. SIMVASTATIN [Concomitant]
     Dosage: 40 MG, AT NIGHT
     Route: 048
  7. RAMIPRIL [Concomitant]
     Dosage: 2.5 MG, DAILY
     Route: 048
  8. VENTOLIN [Concomitant]
     Dosage: 2 DF, PRN
  9. SERETIDE EVOHALER [Concomitant]
     Dosage: UNK
  10. TIOTROPIUM [Concomitant]
     Dosage: 1 DF, QD
  11. MOVICOL [Concomitant]
     Dosage: UNK
     Route: 048
  12. ATROVENT [Concomitant]
     Dosage: 120 UNIT DOSE
  13. LANZOPRAZOL [Concomitant]
     Dosage: 1 DF, QD
  14. FLUTICASONE [Concomitant]
     Dosage: 1 DF (1 INHALATION), BID
  15. COLECALCIFEROL [Concomitant]
     Dosage: 1 DF (400UNITS/1.5GM), BID
  16. LAXIDO [Concomitant]
     Dosage: 1-2, PRN
  17. E45 CREAM [Concomitant]
     Dosage: 500 MG, PRN

REACTIONS (5)
  - Chronic obstructive pulmonary disease [Fatal]
  - Fall [Fatal]
  - Lower respiratory tract infection [Recovered/Resolved]
  - White blood cell count increased [Not Recovered/Not Resolved]
  - Neutrophil count increased [Not Recovered/Not Resolved]
